FAERS Safety Report 14782272 (Version 1)
Quarter: 2018Q2

REPORT INFORMATION
  Report Type: Spontaneous
  Country: AT (occurrence: AT)
  Receive Date: 20180420
  Receipt Date: 20180420
  Transmission Date: 20180711
  Serious: Yes (Other)
  Sender: FDA-Public Use
  Company Number: AT-CONCORDIA PHARMACEUTICALS INC.-E2B_00010775

PATIENT
  Age: 42 Year
  Sex: Female
  Weight: 62.5 kg

DRUGS (1)
  1. PREDNISOLONE. [Suspect]
     Active Substance: PREDNISOLONE
     Indication: CLINICALLY ISOLATED SYNDROME
     Dosage: VERABREICHT ALS INFUSION MIT NACL
     Dates: start: 20170707, end: 20170711

REACTIONS (3)
  - Hypokalaemia [Recovered/Resolved]
  - Pancreatitis [Unknown]
  - Abdominal pain [Recovered/Resolved]

NARRATIVE: CASE EVENT DATE: 201707
